FAERS Safety Report 8060141-7 (Version None)
Quarter: 2012Q1

REPORT INFORMATION
  Report Type: 
  Country: None (occurrence: None)
  Receive Date: 20120120
  Receipt Date: 20120109
  Transmission Date: 20120608
  Serious: Yes (Hospitalization)
  Sender: FDA-Public Use
  Company Number: US-TEVA-2011005213

PATIENT
  Sex: Male
  Weight: 63.56 kg

DRUGS (9)
  1. HYDROMORPHONE HYDROCHLORIDE [Concomitant]
  2. BYSTOLIC [Concomitant]
  3. TREANDA [Suspect]
     Indication: CHRONIC LYMPHOCYTIC LEUKAEMIA
     Route: 042
     Dates: start: 20110926
  4. AMLODIPINE [Concomitant]
  5. PREDNISONE [Concomitant]
  6. PIPERACILLIN AND TAZOBACTAM [Concomitant]
  7. TESTOSTERONE [Concomitant]
  8. BUDESONIDE W/FORMOTEROL FUMARATE [Concomitant]
  9. ONDANSETRON [Concomitant]

REACTIONS (7)
  - TUMOUR LYSIS SYNDROME [None]
  - LUNG DISORDER [None]
  - GASTROINTESTINAL NEOPLASM [None]
  - RENAL FAILURE [None]
  - PLEURAL EFFUSION [None]
  - BONE PAIN [None]
  - SEPSIS [None]
